FAERS Safety Report 8966573 (Version 2)
Quarter: 2012Q4

REPORT INFORMATION
  Report Type: Report from Study
  Country: US (occurrence: US)
  Receive Date: 20121214
  Receipt Date: 20121218
  Transmission Date: 20130627
  Serious: Yes (Death, Hospitalization, Other)
  Sender: FDA-Public Use
  Company Number: US-ABBOTT-12P-163-1020235-00

PATIENT
  Age: 53 None
  Sex: Male

DRUGS (8)
  1. HUMIRA [Suspect]
     Indication: RHEUMATOID ARTHRITIS
  2. PREDNISONE [Suspect]
     Indication: PRODUCT USED FOR UNKNOWN INDICATION
  3. CHEMOTHERAPEUTICS [Suspect]
  4. ARAVA [Concomitant]
     Indication: PRODUCT USED FOR UNKNOWN INDICATION
  5. FISH OIL [Concomitant]
     Indication: PRODUCT USED FOR UNKNOWN INDICATION
  6. RELAFEN [Concomitant]
     Indication: PRODUCT USED FOR UNKNOWN INDICATION
  7. LORCET [Concomitant]
     Indication: PRODUCT USED FOR UNKNOWN INDICATION
  8. VITAMIN C [Concomitant]
     Indication: PRODUCT USED FOR UNKNOWN INDICATION

REACTIONS (16)
  - Pancreatic carcinoma metastatic [Fatal]
  - Bronchitis [Not Recovered/Not Resolved]
  - Pain [Fatal]
  - Vomiting [Fatal]
  - Haemoptysis [Fatal]
  - Skin discolouration [Recovered/Resolved]
  - Bile duct obstruction [Unknown]
  - Decreased appetite [Fatal]
  - Weight decreased [Fatal]
  - Cataract [Unknown]
  - Dyspnoea [Unknown]
  - Throat tightness [Unknown]
  - Impaired gastric emptying [Unknown]
  - Respiratory tract congestion [Fatal]
  - Cough [Fatal]
  - Pyrexia [Fatal]
